FAERS Safety Report 4748687-8 (Version None)
Quarter: 2005Q3

REPORT INFORMATION
  Report Type: 
  Country: None (occurrence: None)
  Receive Date: 20050819
  Receipt Date: 20050721
  Transmission Date: 20060218
  Serious: Yes (Death, Life-Threatening, Hospitalization)
  Sender: FDA-Public Use
  Company Number: US-AMGEN-US143671

PATIENT
  Sex: Female
  Weight: 44.3 kg

DRUGS (1)
  1. ENBREL [Suspect]
     Indication: GRAFT VERSUS HOST DISEASE
     Route: 058
     Dates: start: 20050402, end: 20050602

REACTIONS (8)
  - CYTOMEGALOVIRUS VIRAEMIA [None]
  - DEVICE RELATED INFECTION [None]
  - ESCHERICHIA SEPSIS [None]
  - FANCONI SYNDROME [None]
  - GRAFT VERSUS HOST DISEASE [None]
  - PNEUMONIA [None]
  - SEPTIC SHOCK [None]
  - STAPHYLOCOCCAL INFECTION [None]
